FAERS Safety Report 19587179 (Version 1)
Quarter: 2021Q3

REPORT INFORMATION
  Report Type: Spontaneous
  Country: US (occurrence: US)
  Receive Date: 20210720
  Receipt Date: 20210720
  Transmission Date: 20211014
  Serious: Yes (Hospitalization)
  Sender: FDA-Public Use
  Company Number: None

PATIENT
  Age: 76 Year
  Sex: Female
  Weight: 99 kg

DRUGS (11)
  1. LETAIRIS [Suspect]
     Active Substance: AMBRISENTAN
     Indication: PULMONARY ARTERIAL HYPERTENSION
     Route: 048
     Dates: start: 20160315
  2. REVATIO [Concomitant]
     Active Substance: SILDENAFIL CITRATE
  3. PREDNISONE. [Concomitant]
     Active Substance: PREDNISONE
  4. DETROL LA [Concomitant]
     Active Substance: TOLTERODINE TARTRATE
  5. OTEZLA [Concomitant]
     Active Substance: APREMILAST
  6. CELEBREX [Concomitant]
     Active Substance: CELECOXIB
  7. COUMADIN [Concomitant]
     Active Substance: WARFARIN SODIUM
  8. ESCITALOPRAM [Concomitant]
     Active Substance: ESCITALOPRAM OXALATE
  9. MYCOPHENOLATE [Concomitant]
     Active Substance: MYCOPHENOLIC ACID
  10. OMEPRAZOLE. [Concomitant]
     Active Substance: OMEPRAZOLE
  11. TAMOXIFEN [Concomitant]
     Active Substance: TAMOXIFEN

REACTIONS (2)
  - Pneumonia [None]
  - COVID-19 [None]

NARRATIVE: CASE EVENT DATE: 20210518
